FAERS Safety Report 4660061-1 (Version None)
Quarter: 2005Q2

REPORT INFORMATION
  Report Type: 
  Country: None (occurrence: None)
  Receive Date: 20050512
  Receipt Date: 20050506
  Transmission Date: 20051028
  Serious: Yes (Death)
  Sender: FDA-Public Use
  Company Number: PHHO2005ES07269

PATIENT
  Age: 65 Year
  Sex: Male

DRUGS (2)
  1. STEROIDS NOS [Suspect]
     Indication: TRANSPLANT
     Dosage: 10 MG / DAY
     Route: 048
     Dates: start: 19970516
  2. NEORAL [Suspect]
     Indication: TRANSPLANT
     Dosage: 300 MG / DAY
     Route: 048
     Dates: start: 20030108, end: 20030402

REACTIONS (2)
  - LYMPHOMA [None]
  - NASAL NEOPLASM [None]
